FAERS Safety Report 7046751-4 (Version None)
Quarter: 2010Q4

REPORT INFORMATION
  Report Type: 
  Country: None (occurrence: None)
  Receive Date: 20101015
  Receipt Date: 20101005
  Transmission Date: 20110411
  Serious: Yes (Hospitalization)
  Sender: FDA-Public Use
  Company Number: FR-JNJFOC-20101001399

PATIENT
  Age: 74 Year
  Sex: Female

DRUGS (10)
  1. REMICADE [Suspect]
     Indication: RHEUMATOID ARTHRITIS
     Route: 042
  2. CORTANCYL [Suspect]
     Indication: RHEUMATOID ARTHRITIS
     Route: 048
  3. METOJECT [Suspect]
     Indication: RHEUMATOID ARTHRITIS
     Route: 051
  4. CACIT D3 [Concomitant]
  5. ZALDIAR [Concomitant]
  6. SPECIAFOLDINE [Concomitant]
  7. NEXIUM [Concomitant]
  8. VOLTAREN [Concomitant]
  9. STILNOX [Concomitant]
  10. NULYTELY [Concomitant]

REACTIONS (1)
  - MALIGNANT MELANOMA [None]
